FAERS Safety Report 7445002-6 (Version None)
Quarter: 2011Q2

REPORT INFORMATION
  Report Type: 
  Country: None (occurrence: None)
  Receive Date: 20110429
  Receipt Date: 20110426
  Transmission Date: 20111010
  Serious: Yes (Death, Other)
  Sender: FDA-Public Use
  Company Number: PHHY2011VE35487

PATIENT
  Sex: Female

DRUGS (1)
  1. DIOVAN [Suspect]
     Indication: HYPERTENSION
     Route: 048

REACTIONS (6)
  - DIARRHOEA [None]
  - NEOPLASM MALIGNANT [None]
  - MASS [None]
  - BONE DISORDER [None]
  - PAIN [None]
  - LUNG NEOPLASM MALIGNANT [None]
